FAERS Safety Report 6145606-7 (Version None)
Quarter: 2009Q2

REPORT INFORMATION
  Report Type: 
  Country: None (occurrence: None)
  Receive Date: 20090407
  Receipt Date: 20090402
  Transmission Date: 20091009
  Serious: Yes (Hospitalization)
  Sender: FDA-Public Use
  Company Number: GB-TEVA-190318ISR

PATIENT
  Age: 30 Year
  Sex: Male

DRUGS (4)
  1. BECLOMETASONE [Suspect]
     Indication: ASTHMA
     Route: 055
  2. BECLOMETASONE [Suspect]
  3. SALBUTAMOL [Suspect]
     Indication: ASTHMA
     Route: 055
  4. ENERGIX [Suspect]
     Indication: PROPHYLAXIS
     Dates: start: 20090126, end: 20090126

REACTIONS (1)
  - CEREBROVASCULAR ACCIDENT [None]
